FAERS Safety Report 5825787-2 (Version None)
Quarter: 2008Q3

REPORT INFORMATION
  Report Type: 
  Country: None (occurrence: None)
  Receive Date: 20080729
  Receipt Date: 20080717
  Transmission Date: 20090109
  Serious: Yes (Hospitalization)
  Sender: FDA-Public Use
  Company Number: CH-ASTRAZENECA-2008PK01606

PATIENT
  Age: 74 Year
  Sex: Female

DRUGS (7)
  1. BELOC-ZOK [Suspect]
     Route: 048
  2. NOVOLOG MIX 70/30 [Interacting]
     Route: 058
     Dates: end: 20080224
  3. PRAVALOTIN [Concomitant]
     Route: 048
  4. PANTOPRAZOLE SODIUM [Concomitant]
     Route: 048
  5. ALDACTONE [Concomitant]
     Route: 048
  6. ENATEC [Concomitant]
     Route: 048
  7. PLAVIX [Concomitant]
     Route: 048

REACTIONS (3)
  - DRUG INTERACTION [None]
  - HYPOGLYCAEMIA [None]
  - HYPOTHERMIA [None]
